FAERS Safety Report 6282097-X (Version None)
Quarter: 2009Q3

REPORT INFORMATION
  Report Type: 
  Country: None (occurrence: None)
  Receive Date: 20090724
  Receipt Date: 20090714
  Transmission Date: 20100115
  Serious: Yes (Death, Hospitalization)
  Sender: FDA-Public Use
  Company Number: CR-WYE-H10181609

PATIENT
  Age: 78 Year
  Sex: Male

DRUGS (3)
  1. PANTECTA [Suspect]
     Indication: DYSPEPSIA
     Route: 048
     Dates: start: 20090101
  2. PANTECTA [Suspect]
     Indication: COLITIS
  3. METFORMIN HCL [Concomitant]

REACTIONS (5)
  - ACUTE PULMONARY OEDEMA [None]
  - CARDIAC FAILURE [None]
  - DIABETES MELLITUS [None]
  - MYOCARDIAL INFARCTION [None]
  - RENAL FAILURE CHRONIC [None]
